FAERS Safety Report 10720256 (Version 2)
Quarter: 2015Q1

REPORT INFORMATION
  Report Type: Spontaneous
  Country: US (occurrence: US)
  Receive Date: 20150119
  Receipt Date: 20150120
  Transmission Date: 20150721
  Serious: Yes (Death)
  Sender: FDA-Public Use
  Company Number: US-JNJFOC-20150102577

PATIENT
  Age: 74 Year
  Sex: Male

DRUGS (1)
  1. ZYTIGA [Suspect]
     Active Substance: ABIRATERONE ACETATE
     Indication: PRODUCT USED FOR UNKNOWN INDICATION
     Route: 048
     Dates: start: 201403

REACTIONS (4)
  - Prostatic specific antigen increased [Unknown]
  - Respiratory failure [Fatal]
  - Myasthenia gravis [Fatal]
  - Asthenia [Unknown]

NARRATIVE: CASE EVENT DATE: 20140730
